FAERS Safety Report 6713537-7 (Version None)
Quarter: 2010Q2

REPORT INFORMATION
  Report Type: 
  Country: None (occurrence: None)
  Receive Date: 20100504
  Receipt Date: 20100414
  Transmission Date: 20101027
  Serious: No
  Sender: FDA-Public Use
  Company Number: 2010-00386

PATIENT
  Age: 35 Year
  Sex: Female
  Weight: 52.6173 kg

DRUGS (1)
  1. ZICAM COLD REMEDY GEL SWABS [Suspect]
     Dosage: SPORADIC USE
     Dates: start: 20070101, end: 20070101

REACTIONS (1)
  - ANOSMIA [None]
